FAERS Safety Report 9008776 (Version 1)
Quarter: 2013Q1

REPORT INFORMATION
  Report Type: Spontaneous
  Country: CH (occurrence: CH)
  Receive Date: 20130111
  Receipt Date: 20130111
  Transmission Date: 20140127
  Serious: Yes (Hospitalization)
  Sender: FDA-Public Use
  Company Number: CH-ASTRAZENECA-2013SE01750

PATIENT
  Age: 69 Year
  Sex: Male

DRUGS (2)
  1. SEROQUEL XR [Suspect]
     Dosage: EXACT DOSAGE UNKNOWN
     Route: 048
     Dates: start: 20120918, end: 20120919
  2. AMITRIPTYLINE HYDROCHLORIDE [Suspect]
     Indication: DEPRESSION
     Dosage: DOSAGE UNKNOWN, PROBABLY IN THERAPEUTIC DOSES
     Route: 048
     Dates: start: 20120910, end: 20120919

REACTIONS (5)
  - Anticholinergic syndrome [Recovered/Resolved]
  - Urinary retention [Recovered/Resolved]
  - Delirium [Recovered/Resolved]
  - Dry mouth [Recovered/Resolved]
  - Tachycardia [Recovered/Resolved]
